FAERS Safety Report 9844967 (Version 1)
Quarter: 2014Q1

REPORT INFORMATION
  Report Type: Spontaneous
  Country: GB (occurrence: None)
  Receive Date: 20140122
  Receipt Date: 20140122
  Transmission Date: 20141002
  Serious: Yes (Life-Threatening, Hospitalization)
  Sender: FDA-Public Use
  Company Number: AUR-APL-2014-00414

PATIENT
  Age: 92 Year
  Sex: Female
  Weight: 38.6 kg

DRUGS (7)
  1. ALENDRONIC ACID (ALENDRONIC ACID) [Suspect]
     Indication: OSTEOPOROSIS PROPHYLAXIS
     Route: 048
     Dates: start: 20131231, end: 20140104
  2. ASPIRIN (ACETYLSALICYLIC ACID) [Suspect]
     Route: 048
     Dates: start: 20131210, end: 20140104
  3. AMLODIPINE [Suspect]
  4. CALCICHEW D3 (LEKOVIT CA) [Suspect]
  5. CLARITHROMYCIN [Suspect]
  6. ENOXAPARIN [Concomitant]
  7. PARACETAMOL [Concomitant]

REACTIONS (2)
  - Gastrointestinal haemorrhage [None]
  - Hypotension [None]
